FAERS Safety Report 7980424-6 (Version None)
Quarter: 2011Q4

REPORT INFORMATION
  Report Type: 
  Country: None (occurrence: None)
  Receive Date: 20111214
  Receipt Date: 20111208
  Transmission Date: 20120403
  Serious: Yes (Hospitalization)
  Sender: FDA-Public Use
  Company Number: US-GLAXOSMITHKLINE-A0877497A

PATIENT
  Sex: Female

DRUGS (1)
  1. ROSIGLITAZONE MALEATE [Suspect]
     Indication: TYPE 2 DIABETES MELLITUS
     Route: 048

REACTIONS (4)
  - ELECTROCARDIOGRAM ABNORMAL [None]
  - CEREBROVASCULAR ACCIDENT [None]
  - HEART VALVE INCOMPETENCE [None]
  - TRANSIENT ISCHAEMIC ATTACK [None]
